FAERS Safety Report 24217596 (Version 1)
Quarter: 2024Q3

REPORT INFORMATION
  Report Type: Spontaneous
  Country: US (occurrence: US)
  Receive Date: 20240816
  Receipt Date: 20240816
  Transmission Date: 20241017
  Serious: Yes (Other)
  Sender: BRISTOL MYERS SQUIBB
  Company Number: US-BRISTOL-MYERS SQUIBB COMPANY-2024-128480

PATIENT
  Age: 82 Year
  Sex: Female

DRUGS (1)
  1. LENALIDOMIDE [Suspect]
     Active Substance: LENALIDOMIDE
     Indication: Constipation
     Dosage: TAKE 1 CAPSULE BY MOUTH WITH WATER, WITH OR WITHOUT FOOD
     Route: 048

REACTIONS (2)
  - Cardiac failure congestive [Unknown]
  - Off label use [Unknown]
